FAERS Safety Report 6327396-8 (Version None)
Quarter: 2009Q3

REPORT INFORMATION
  Report Type: 
  Country: None (occurrence: None)
  Receive Date: 20090821
  Receipt Date: 20090810
  Transmission Date: 20100115
  Serious: Yes (Hospitalization)
  Sender: FDA-Public Use
  Company Number: IDA-00246

PATIENT
  Age: 60 Year
  Sex: Female

DRUGS (3)
  1. PROPRANOLOL [Suspect]
     Indication: BLOOD PRESSURE FLUCTUATION
     Dosage: ORAL
     Route: 048
     Dates: start: 20070101
  2. ARIMIDEX [Suspect]
     Indication: BREAST CANCER
     Dosage: ORAL FORMULATION: TABLET
     Route: 048
     Dates: start: 20090601, end: 20090805
  3. (HERBAL NOS) [Concomitant]

REACTIONS (6)
  - ARTHRALGIA [None]
  - BREAST CANCER [None]
  - MUSCULAR WEAKNESS [None]
  - NAUSEA [None]
  - SOMNOLENCE [None]
  - VARICOSE VEIN [None]
